FAERS Safety Report 13192372 (Version 5)
Quarter: 2017Q3

REPORT INFORMATION
  Report Type: Report from Study
  Country: GR (occurrence: GR)
  Receive Date: 20170207
  Receipt Date: 20170804
  Transmission Date: 20171127
  Serious: Yes (Life-Threatening, Other)
  Sender: FDA-Public Use
  Company Number: PHHY2017GR013330

PATIENT
  Age: 31 Year
  Sex: Female
  Weight: 65 kg

DRUGS (4)
  1. MEDROL [Concomitant]
     Active Substance: METHYLPREDNISOLONE
     Indication: COLLAGEN DISORDER
     Route: 065
  2. DEPAKINE [Concomitant]
     Active Substance: VALPROATE SODIUM
     Indication: SYSTEMIC LUPUS ERYTHEMATOSUS
     Route: 065
  3. EXJADE [Suspect]
     Active Substance: DEFERASIROX
     Indication: THALASSAEMIA
     Dosage: 500 MG, 5QD
     Route: 048
     Dates: start: 20150618, end: 20170120
  4. MEDROL [Concomitant]
     Active Substance: METHYLPREDNISOLONE
     Indication: SYSTEMIC LUPUS ERYTHEMATOSUS

REACTIONS (3)
  - Cardiac disorder [Not Recovered/Not Resolved]
  - Drug ineffective [Recovered/Resolved]
  - Haemosiderosis [Recovered/Resolved]

NARRATIVE: CASE EVENT DATE: 20161202
